FAERS Safety Report 12605086 (Version 1)
Quarter: 2016Q3

REPORT INFORMATION
  Report Type: Spontaneous
  Country: US (occurrence: US)
  Receive Date: 20160728
  Receipt Date: 20160728
  Transmission Date: 20161109
  Serious: Yes (Hospitalization)
  Sender: FDA-Public Use
  Company Number: US-TEVA-678705USA

PATIENT
  Age: 70 Year
  Sex: Male
  Weight: 73.55 kg

DRUGS (4)
  1. CEFALEXIN [Suspect]
     Active Substance: CEPHALEXIN
     Indication: INFECTION PROPHYLAXIS
     Dates: start: 20160707, end: 20160708
  2. AZITHROMYCIN ANHYDROUS. [Suspect]
     Active Substance: AZITHROMYCIN ANHYDROUS
     Indication: DYSURIA
  3. LEVOTHYROXINE. [Concomitant]
     Active Substance: LEVOTHYROXINE
  4. AZITHROMYCIN ANHYDROUS. [Suspect]
     Active Substance: AZITHROMYCIN ANHYDROUS
     Indication: BLOOD URINE PRESENT

REACTIONS (6)
  - Hallucination [Unknown]
  - Speech disorder [Unknown]
  - Aggression [Unknown]
  - Abnormal behaviour [Unknown]
  - Feeling abnormal [Unknown]
  - Activities of daily living impaired [Unknown]

NARRATIVE: CASE EVENT DATE: 20160707
